FAERS Safety Report 13842718 (Version 2)
Quarter: 2024Q4

REPORT INFORMATION
  Report Type: Spontaneous
  Country: DE (occurrence: DE)
  Receive Date: 20170808
  Receipt Date: 20241004
  Transmission Date: 20250115
  Serious: Yes (Life-Threatening, Hospitalization, Other)
  Sender: ACCORD
  Company Number: DE-ACCORD-056790

PATIENT
  Age: 6 Month
  Sex: Male
  Weight: 6.6 kg

DRUGS (6)
  1. METHOTREXATE [Suspect]
     Active Substance: METHOTREXATE
     Indication: Prophylaxis against graft versus host disease
     Dosage: 10 MG/M^2 BODY SURFACE AREA
  2. FLUDARABINE [Suspect]
     Active Substance: FLUDARABINE PHOSPHATE
     Indication: Bone marrow conditioning regimen
     Dosage: 1.4 MG/KG BODY WEIGHT
  3. THIOTEPA [Suspect]
     Active Substance: THIOTEPA
     Indication: Bone marrow conditioning regimen
     Dosage: 8 MG/KG BODY WEIGHT
  4. TREOSULFAN [Suspect]
     Active Substance: TREOSULFAN
     Indication: Bone marrow conditioning regimen
     Dosage: 12 G/M^2 BODY SURFACE AREA
  5. THYMOCYTE IMMUNE GLOBULIN NOS [Suspect]
     Active Substance: THYMOCYTE IMMUNE GLOBULIN NOS
     Indication: Prophylaxis against graft versus host disease
     Dosage: 1/14/15/15 MG/KG BODY WEIGHT
  6. CYCLOSPORINE [Suspect]
     Active Substance: CYCLOSPORINE
     Indication: Prophylaxis against graft versus host disease
     Dosage: 2 X1.5 MG/KG BODY WEIGHT UNTIL DAY+5

REACTIONS (13)
  - Renal impairment [Recovered/Resolved]
  - Nausea [Recovered/Resolved]
  - Vomiting [Recovered/Resolved]
  - Mucosal toxicity [Recovered/Resolved]
  - Skin toxicity [Recovered/Resolved]
  - Respiratory syncytial virus infection [Recovered/Resolved]
  - Diarrhoea [Recovered/Resolved]
  - Bronchitis [Recovered/Resolved]
  - Coronavirus infection [Recovered/Resolved]
  - Rotavirus infection [Recovered/Resolved]
  - Adenovirus infection [Recovered/Resolved]
  - Influenza virus test positive [Recovered/Resolved]
  - Off label use [Unknown]
